FAERS Safety Report 5563787-0 (Version None)
Quarter: 2007Q4

REPORT INFORMATION
  Report Type: 
  Country: None (occurrence: None)
  Receive Date: 20071217
  Receipt Date: 20071207
  Transmission Date: 20080405
  Serious: Yes (Disabling)
  Sender: FDA-Public Use
  Company Number: JP-ASTRAZENECA-2007AP07769

PATIENT
  Age: 81 Year
  Sex: Female

DRUGS (2)
  1. ANAPEINE INJECTION [Suspect]
     Route: 008
     Dates: start: 20060601, end: 20060601
  2. MARCAINE [Suspect]
     Route: 037
     Dates: start: 20060601

REACTIONS (2)
  - CAUDA EQUINA SYNDROME [None]
  - MOTOR DYSFUNCTION [None]
